FAERS Safety Report 5379025-8 (Version None)
Quarter: 2007Q2

REPORT INFORMATION
  Report Type: 
  Country: None (occurrence: None)
  Receive Date: 20070625
  Receipt Date: 20070615
  Transmission Date: 20071010
  Serious: Yes (Death, Hospitalization)
  Sender: FDA-Public Use
  Company Number: 200711990

PATIENT
  Age: 56 Year
  Sex: Male

DRUGS (1)
  1. ZEMAIRA VS PLACEBO [Suspect]
     Indication: ALPHA-1 ANTI-TRYPSIN DEFICIENCY
     Dates: start: 20070602

REACTIONS (5)
  - PLEURISY [None]
  - PNEUMONIA [None]
  - PROSTATE INFECTION [None]
  - RESPIRATORY FAILURE [None]
  - SEPSIS [None]
